FAERS Safety Report 8590942-8 (Version None)
Quarter: 2012Q3

REPORT INFORMATION
  Report Type: 
  Country: None (occurrence: None)
  Receive Date: 20120813
  Receipt Date: 20120806
  Transmission Date: 20120928
  Serious: Yes (Hospitalization, Other)
  Sender: FDA-Public Use
  Company Number: US-ABBOTT-12P-163-0965428-00

PATIENT
  Age: 17 Year
  Sex: Male

DRUGS (6)
  1. HUMIRA [Suspect]
     Dosage: ONE TIME 160 MG LOADING DOSE
     Route: 058
     Dates: start: 20120803, end: 20120803
  2. HUMIRA [Suspect]
     Indication: CROHN'S DISEASE
     Route: 058
     Dates: start: 20120601, end: 20120701
  3. METHOTREXATE [Concomitant]
     Indication: PRODUCT USED FOR UNKNOWN INDICATION
     Dates: start: 20120802
  4. IRON [Concomitant]
     Indication: PRODUCT USED FOR UNKNOWN INDICATION
  5. ACID REFLUX PILLS [Concomitant]
     Indication: GASTROOESOPHAGEAL REFLUX DISEASE
     Dosage: 2 PILLS EVERY DAY
  6. NO NAUSEA MEDICINE [Concomitant]
     Indication: NAUSEA

REACTIONS (5)
  - FREQUENT BOWEL MOVEMENTS [None]
  - DECREASED APPETITE [None]
  - HAEMOGLOBIN DECREASED [None]
  - FATIGUE [None]
  - CROHN'S DISEASE [None]
